FAERS Safety Report 4881849-8 (Version None)
Quarter: 2006Q1

REPORT INFORMATION
  Report Type: 
  Country: None (occurrence: None)
  Receive Date: 20060112
  Receipt Date: 20060104
  Transmission Date: 20060701
  Serious: Yes (Death, Hospitalization, Other)
  Sender: FDA-Public Use
  Company Number: 2005149678

PATIENT
  Age: 98 Year
  Sex: Female
  Weight: 44.4525 kg

DRUGS (11)
  1. NORVASC [Suspect]
     Indication: CARDIAC PACEMAKER INSERTION
     Dosage: SEE IMAGE
     Route: 048
     Dates: start: 20040818, end: 20040101
  2. NORVASC [Suspect]
     Indication: CARDIAC PACEMAKER INSERTION
     Dosage: SEE IMAGE
     Route: 048
     Dates: start: 20040501, end: 20040731
  3. NORVASC [Suspect]
     Indication: CARDIAC PACEMAKER INSERTION
     Dosage: SEE IMAGE
     Route: 048
     Dates: start: 20040801, end: 20040817
  4. NORVASC [Suspect]
     Indication: CARDIAC PACEMAKER INSERTION
     Dosage: SEE IMAGE
     Route: 048
     Dates: start: 20040101, end: 20050129
  5. VASOTEC [Concomitant]
  6. MULTIVITAMIN [Concomitant]
  7. ASPIRIN [Concomitant]
  8. SENOKOT [Concomitant]
  9. IRON (IRON) [Concomitant]
  10. MIRALAX [Concomitant]
  11. COLACE (DOCUSATE SODIUM) [Concomitant]

REACTIONS (16)
  - AORTIC VALVE INCOMPETENCE [None]
  - BLOOD CREATININE ABNORMAL [None]
  - CARDIAC FAILURE CONGESTIVE [None]
  - DISTURBANCE IN ATTENTION [None]
  - DRUG DISPENSING ERROR [None]
  - HYPOTENSION [None]
  - INCORRECT DOSE ADMINISTERED [None]
  - JOINT SWELLING [None]
  - MITRAL VALVE CALCIFICATION [None]
  - MITRAL VALVE INCOMPETENCE [None]
  - OVERDOSE [None]
  - PLEURAL EFFUSION [None]
  - PROTEIN TOTAL INCREASED [None]
  - PULMONARY ARTERIAL PRESSURE INCREASED [None]
  - TRICUSPID VALVE INCOMPETENCE [None]
  - VENTRICULAR HYPERTROPHY [None]
